FAERS Safety Report 14715210 (Version 2)
Quarter: 2018Q2

REPORT INFORMATION
  Report Type: Spontaneous
  Country: US (occurrence: US)
  Receive Date: 20180404
  Receipt Date: 20180409
  Transmission Date: 20180711
  Serious: Yes (Other)
  Sender: FDA-Public Use
  Company Number: US-PFIZER INC-2018135886

PATIENT
  Age: 60 Year
  Sex: Female

DRUGS (4)
  1. METFORMIN [Concomitant]
     Active Substance: METFORMIN HYDROCHLORIDE
     Dosage: UNK
  2. SUTENT [Suspect]
     Active Substance: SUNITINIB MALATE
     Indication: GASTROINTESTINAL STROMAL TUMOUR
     Dosage: 37.5 MG, CYCLIC (DAILY FOR 2 WEEKS ON, THEN 1 WEEK OFF)
     Dates: start: 20150402
  3. BABY ASPIRIN [Concomitant]
     Active Substance: ASPIRIN
     Dosage: UNK
  4. INSULIN [Concomitant]
     Active Substance: INSULIN NOS
     Dosage: UNK

REACTIONS (16)
  - Headache [Unknown]
  - Erythema [Unknown]
  - Palmar-plantar erythrodysaesthesia syndrome [Unknown]
  - Asthenia [Unknown]
  - Thyroid disorder [Unknown]
  - Diabetes mellitus [Unknown]
  - Movement disorder [Unknown]
  - Lentigo [Unknown]
  - Skin reaction [Unknown]
  - Dyspepsia [Unknown]
  - Hyperaesthesia [Unknown]
  - Blood magnesium decreased [Unknown]
  - Eating disorder [Unknown]
  - Stress [Unknown]
  - Skin discolouration [Unknown]
  - Alopecia [Recovering/Resolving]
